FAERS Safety Report 10055808 (Version 1)
Quarter: 2014Q2

REPORT INFORMATION
  Report Type: Spontaneous
  Country: US (occurrence: US)
  Receive Date: 20140403
  Receipt Date: 20140403
  Transmission Date: 20141212
  Serious: Yes (Other)
  Sender: FDA-Public Use
  Company Number: US-ASTRAZENECA-2014SE21913

PATIENT
  Age: 64 Year
  Sex: Male
  Weight: 110.2 kg

DRUGS (13)
  1. ATENOLOL [Suspect]
     Indication: BLOOD PRESSURE ABNORMAL
     Route: 048
     Dates: start: 2012
  2. CRESTOR [Suspect]
     Indication: BLOOD CHOLESTEROL
     Route: 048
     Dates: start: 2013
  3. ENALOPRIL MALEATE [Concomitant]
     Indication: BLOOD PRESSURE ABNORMAL
     Route: 048
  4. ENALOPRIL MALEATE [Concomitant]
     Indication: BLOOD PRESSURE ABNORMAL
     Route: 048
  5. HYDROCHLOROTHIAZIDE [Concomitant]
     Indication: BLOOD PRESSURE ABNORMAL
     Route: 048
  6. NIACIN [Concomitant]
     Route: 048
  7. ASPIRIN [Concomitant]
     Route: 048
  8. LOVAZA [Concomitant]
     Indication: BLOOD TRIGLYCERIDES
     Route: 048
  9. VITAMIN B12 [Concomitant]
     Indication: SUPPLEMENTATION THERAPY
     Route: 048
  10. FOLIC ACID [Concomitant]
     Indication: PLATELET COUNT DECREASED
     Route: 048
  11. FLAX SEED [Concomitant]
     Indication: BLOOD CHOLESTEROL
     Route: 048
  12. FLAX SEED [Concomitant]
     Indication: BLOOD TRIGLYCERIDES ABNORMAL
     Route: 048
  13. SIMVASTATIN [Concomitant]

REACTIONS (9)
  - Chromaturia [Recovered/Resolved]
  - Hepatic failure [Unknown]
  - Platelet count decreased [Recovering/Resolving]
  - Pain [Recovered/Resolved]
  - Hypoaesthesia [Recovered/Resolved]
  - Hypoaesthesia oral [Recovered/Resolved]
  - Hypoaesthesia [Recovered/Resolved]
  - Blood glucose increased [Unknown]
  - Dizziness [Recovered/Resolved]
